FAERS Safety Report 6276319-9 (Version None)
Quarter: 2009Q3

REPORT INFORMATION
  Report Type: 
  Country: None (occurrence: None)
  Receive Date: 20090720
  Receipt Date: 20090720
  Transmission Date: 20100115
  Serious: Yes (Hospitalization)
  Sender: FDA-Public Use
  Company Number: None

PATIENT
  Age: 79 Year
  Sex: Male
  Weight: 114 kg

DRUGS (2)
  1. DIGOXIN [Suspect]
     Indication: ATRIAL FIBRILLATION
     Dosage: 0.25 MG EVERY DAY PO
     Route: 048
     Dates: start: 20090126, end: 20090602
  2. METOPROLOL [Suspect]
     Dosage: 50 MG BID PO
     Route: 048
     Dates: start: 20090421, end: 20090503

REACTIONS (3)
  - BRADYCARDIA [None]
  - DYSPNOEA [None]
  - FATIGUE [None]
